FAERS Safety Report 19671314 (Version 4)
Quarter: 2021Q3

REPORT INFORMATION
  Report Type: Report from Study
  Country: CA (occurrence: CA)
  Receive Date: 20210806
  Receipt Date: 20210910
  Transmission Date: 20211014
  Serious: Yes (Other)
  Sender: FDA-Public Use
  Company Number: CA-ROCHE-2882539

PATIENT
  Age: 68 Year
  Sex: Female
  Weight: 79.8 kg

DRUGS (26)
  1. ADENOSINE. [Concomitant]
     Active Substance: ADENOSINE
     Indication: SUPRAVENTRICULAR TACHYCARDIA
     Dosage: 300ML NORMAL SALINE
     Route: 042
     Dates: start: 20210622, end: 20210622
  2. PREDNISOLONE. [Concomitant]
     Active Substance: PREDNISOLONE
     Dates: start: 20210716
  3. ATEZOLIZUMAB. [Suspect]
     Active Substance: ATEZOLIZUMAB
     Indication: NON-SMALL CELL LUNG CANCER METASTATIC
     Dosage: ON 24/JUN/2021, SHE RECEIVED LAST STUDY DRUG ADMIN PRIOR SAE 1680 MG?ON DAY 29 (PER PROTOCOL)
     Route: 041
     Dates: start: 20210429
  4. SLOW K [Concomitant]
     Active Substance: POTASSIUM CHLORIDE
     Indication: PROPHYLAXIS
     Dosage: DOSE:40 OTHER
     Route: 048
     Dates: start: 20210409
  5. BENADRYL [Concomitant]
     Active Substance: DIPHENHYDRAMINE HYDROCHLORIDE
     Indication: RASH MACULO-PAPULAR
     Route: 042
     Dates: start: 20210527
  6. BENADRYL [Concomitant]
     Active Substance: DIPHENHYDRAMINE HYDROCHLORIDE
     Route: 048
     Dates: start: 20210403
  7. CRESTOR [Concomitant]
     Active Substance: ROSUVASTATIN CALCIUM
     Indication: DYSLIPIDAEMIA
     Route: 048
     Dates: start: 200606
  8. ENOXAPARIN [Concomitant]
     Active Substance: ENOXAPARIN
     Indication: PROPHYLAXIS
     Route: 058
     Dates: start: 20210407
  9. VERAPAMIL [Concomitant]
     Active Substance: VERAPAMIL HYDROCHLORIDE
     Indication: HYPERTENSION
     Route: 048
     Dates: start: 201605
  10. SOLU?MEDROL [Concomitant]
     Active Substance: METHYLPREDNISOLONE SODIUM SUCCINATE
     Indication: BLOOD CREATINE PHOSPHOKINASE INCREASED
     Dates: start: 20210408
  11. IMODIUM [Concomitant]
     Active Substance: LOPERAMIDE HYDROCHLORIDE
     Indication: DIARRHOEA
     Route: 048
     Dates: start: 20210322
  12. CODEINE [Concomitant]
     Active Substance: CODEINE
     Indication: PAIN IN EXTREMITY
  13. COVID?19 VACCINE [Concomitant]
     Route: 030
     Dates: start: 20210604
  14. ADVIL [Concomitant]
     Active Substance: IBUPROFEN
     Indication: PYREXIA
     Route: 048
     Dates: start: 20210405
  15. COBIMETINIB. [Suspect]
     Active Substance: COBIMETINIB
     Indication: NON-SMALL CELL LUNG CANCER METASTATIC
     Dosage: DOSE LAST STUDY DRUG ADMIN PRIOR SAE 20 MG?ON 14/JUL/2021, THE PATIENT RECEIVED MOST RECENT DOSE OF
     Route: 048
     Dates: start: 20210317
  16. CODEINE [Concomitant]
     Active Substance: CODEINE
     Indication: BACK PAIN
     Route: 048
     Dates: start: 20210331
  17. PERINDOPRIL [Concomitant]
     Active Substance: PERINDOPRIL
     Indication: HYPERTENSION
     Route: 048
     Dates: start: 200605
  18. PREGABALIN. [Concomitant]
     Active Substance: PREGABALIN
     Route: 048
     Dates: start: 20210302
  19. CODEINE [Concomitant]
     Active Substance: CODEINE
     Indication: BREAST PAIN
  20. PERINDOPRIL [Concomitant]
     Active Substance: PERINDOPRIL
     Indication: HYPERTENSION
     Route: 048
     Dates: start: 200605
  21. PREDNISONE. [Concomitant]
     Active Substance: PREDNISONE
     Dates: start: 20210512
  22. VEMURAFENIB. [Suspect]
     Active Substance: VEMURAFENIB
     Indication: NON-SMALL CELL LUNG CANCER METASTATIC
     Dosage: DOSE LAST STUDY DRUG ADMIN PRIOR SAE 240 MG?ON 16/JUL/2021, SHE RECEIVED MOST RECENT DOSE OF VEMURAF
     Route: 048
     Dates: start: 20210317
  23. FLUTICASONE PROPIONATE. [Concomitant]
     Active Substance: FLUTICASONE PROPIONATE
     Indication: ASTHMA
     Dosage: IH, 125 UG
     Dates: start: 200105
  24. SALBUTAMOL [Concomitant]
     Active Substance: ALBUTEROL
     Indication: ASTHMA
     Dosage: INHALANT, 100 UG
     Dates: start: 200101
  25. SENNA [Concomitant]
     Active Substance: SENNA LEAF\SENNOSIDES\SENNOSIDES A AND B
     Indication: CONSTIPATION
     Route: 048
     Dates: start: 202012
  26. PANTOPRAZOLE [Concomitant]
     Active Substance: PANTOPRAZOLE
     Route: 048
     Dates: start: 20210423

REACTIONS (1)
  - Papilloedema [Recovering/Resolving]

NARRATIVE: CASE EVENT DATE: 20210716
